FAERS Safety Report 21563456 (Version 1)
Quarter: 2022Q4

REPORT INFORMATION
  Report Type: Spontaneous
  Country: US (occurrence: US)
  Receive Date: 20221108
  Receipt Date: 20221108
  Transmission Date: 20230112
  Serious: No
  Sender: FDA-Public Use
  Company Number: US-Accord-267441

PATIENT
  Sex: Female
  Weight: 90.72 kg

DRUGS (1)
  1. HYDROCHLOROTHIAZIDE [Suspect]
     Active Substance: HYDROCHLOROTHIAZIDE
     Indication: Hypervolaemia
     Dosage: 1X EACH MORNING 12.5MG
     Dates: start: 202205, end: 20220619

REACTIONS (5)
  - Hypoaesthesia [Unknown]
  - Balance disorder [Unknown]
  - Visual impairment [Unknown]
  - Dry eye [Unknown]
  - Therapeutic response unexpected [Unknown]
